FAERS Safety Report 9739481 (Version 1)
Quarter: 2013Q4

REPORT INFORMATION
  Report Type: Report from Study
  Country: LB (occurrence: LB)
  Receive Date: 20131209
  Receipt Date: 20131209
  Transmission Date: 20140711
  Serious: Yes (Hospitalization)
  Sender: FDA-Public Use
  Company Number: LB-SA-2013SA125432

PATIENT
  Sex: Male

DRUGS (10)
  1. LANTUS SOLOSTAR [Suspect]
     Indication: PRODUCT USED FOR UNKNOWN INDICATION
     Dosage: DOSE:26 UNIT(S)
     Route: 065
     Dates: start: 20130621
  2. DIAMICRON [Concomitant]
  3. GLUCOPHAGE [Concomitant]
  4. CO-DIOVAN [Concomitant]
  5. RISPERIDONE [Concomitant]
  6. LASIX [Concomitant]
  7. AMLOR [Concomitant]
  8. CONCOR [Concomitant]
  9. VASTAREL [Concomitant]
  10. CLOPIDOGREL [Concomitant]

REACTIONS (1)
  - Cerebrovascular accident [Recovering/Resolving]
